FAERS Safety Report 4591947-4 (Version None)
Quarter: 2005Q1

REPORT INFORMATION
  Report Type: 
  Country: None (occurrence: None)
  Receive Date: 20050222
  Receipt Date: 20050208
  Transmission Date: 20050727
  Serious: Yes (Hospitalization)
  Sender: FDA-Public Use
  Company Number: US-2005-001840

PATIENT
  Age: 72 Year
  Sex: Female
  Weight: 54.4 kg

DRUGS (7)
  1. ULTRAVIST 300 [Suspect]
     Indication: COMPUTERISED TOMOGRAM ABDOMEN
     Dosage: 100 ML, 1 DOSE, INTRAVENOUS
     Route: 042
     Dates: start: 20050201, end: 20050201
  2. TOPROL XL (METROPROLOL SUCCINATE) [Concomitant]
  3. LISINOPRIL [Concomitant]
  4. AVANDAMET (ROSIGLITAZONE MALEATE, METFORMIN HYDROCHLORIDE) [Concomitant]
  5. SYNTHROID [Concomitant]
  6. PLAVIX [Concomitant]
  7. PRAVACHOL (PRAVISTATIN  SODIUM) [Concomitant]

REACTIONS (16)
  - ACUTE CORONARY SYNDROME [None]
  - BLOOD PRESSURE DECREASED [None]
  - CARDIAC STRESS TEST ABNORMAL [None]
  - COLD SWEAT [None]
  - DRY SKIN [None]
  - DYSPNOEA [None]
  - ELECTROCARDIOGRAM ST SEGMENT DEPRESSION [None]
  - EMOTIONAL DISTRESS [None]
  - HYPERHIDROSIS [None]
  - HYPOTENSION [None]
  - MYOCARDIAL INFARCTION [None]
  - NASOPHARYNGITIS [None]
  - PALLOR [None]
  - SINOATRIAL BLOCK [None]
  - SKIN WARM [None]
  - VENTRICULAR DYSFUNCTION [None]
